FAERS Safety Report 9086084 (Version 1)
Quarter: 2013Q1

REPORT INFORMATION
  Report Type: Other
  Country: GB (occurrence: GB)
  Receive Date: 20130131
  Receipt Date: 20130131
  Transmission Date: 20140127
  Serious: Yes (Hospitalization)
  Sender: FDA-Public Use
  Company Number: GB-WATSON-2013-01346

PATIENT
  Age: 55 Year
  Sex: Male

DRUGS (3)
  1. DOXYCYCLINE (UNKNOWN) [Suspect]
     Indication: INFECTION
     Dosage: 200MG
     Route: 048
     Dates: start: 20121026, end: 20121103
  2. INFLUENZA VIRUS [Suspect]
     Indication: PROPHYLAXIS
     Dosage: 1 DF TOTAL
     Route: 030
     Dates: start: 20121012, end: 20121012
  3. PENICILLIN                         /00000901/ [Concomitant]
     Indication: ASPLENIA
     Dosage: 250 MG, BID  SEVERAL YEARS
     Route: 048

REACTIONS (6)
  - Abdominal pain [Not Recovered/Not Resolved]
  - Malaise [Not Recovered/Not Resolved]
  - Liver function test abnormal [Not Recovered/Not Resolved]
  - Coagulation time prolonged [Not Recovered/Not Resolved]
  - Amylase increased [Not Recovered/Not Resolved]
  - Activated partial thromboplastin time prolonged [Not Recovered/Not Resolved]
